FAERS Safety Report 7258406-1 (Version None)
Quarter: 2011Q1

REPORT INFORMATION
  Report Type: 
  Country: None (occurrence: None)
  Receive Date: 20110129
  Receipt Date: 20100709
  Transmission Date: 20110831
  Serious: No
  Sender: FDA-Public Use
  Company Number: US-ABBOTT-10P-163-0656307-00

PATIENT
  Age: 29 Year
  Sex: Male

DRUGS (5)
  1. ENTOCORT EC [Concomitant]
     Indication: CROHN'S DISEASE
  2. ZYRTEC [Concomitant]
     Indication: SEASONAL ALLERGY
  3. HUMIRA [Suspect]
     Indication: CROHN'S DISEASE
     Dates: start: 20100226
  4. PENTAZA [Concomitant]
     Indication: CROHN'S DISEASE
  5. NEXIUM [Concomitant]
     Indication: GASTROOESOPHAGEAL REFLUX DISEASE

REACTIONS (1)
  - CHEILITIS [None]
